FAERS Safety Report 16219251 (Version 1)
Quarter: 2019Q2

REPORT INFORMATION
  Report Type: Spontaneous
  Country: PL (occurrence: PL)
  Receive Date: 20190419
  Receipt Date: 20190419
  Transmission Date: 20190711
  Serious: Yes (Life-Threatening)
  Sender: FDA-Public Use
  Company Number: PHHY2019PL090420

PATIENT
  Age: 20 Day
  Sex: Male
  Weight: 3.94 kg

DRUGS (1)
  1. AMOKSIKLAV [Suspect]
     Active Substance: AMOXICILLIN\CLAVULANATE POTASSIUM
     Indication: PREOPERATIVE CARE
     Dosage: 120 MG, UNK (DOSE: 120 MG IN 10 ML WATER FOR INJECTION DILUTED WITH 0.9% NACL)
     Route: 042
     Dates: start: 20161209

REACTIONS (8)
  - Pallor [Recovered/Resolved]
  - Hypotension [Recovered/Resolved]
  - Moaning [Recovered/Resolved]
  - Hypotonia [Recovered/Resolved]
  - Blood pressure immeasurable [Recovered/Resolved]
  - Erythema [Recovered/Resolved]
  - Bradycardia [Recovered/Resolved]
  - Apathy [Recovered/Resolved]

NARRATIVE: CASE EVENT DATE: 20161212
